FAERS Safety Report 7818130-0 (Version None)
Quarter: 2011Q4

REPORT INFORMATION
  Report Type: 
  Country: None (occurrence: None)
  Receive Date: 20111017
  Receipt Date: 20111004
  Transmission Date: 20120403
  Serious: Yes (Other)
  Sender: FDA-Public Use
  Company Number: JP-ROCHE-723203

PATIENT
  Sex: Male
  Weight: 56 kg

DRUGS (11)
  1. PREDNISOLONE [Concomitant]
     Dosage: 10MG IN MORNING AND 5MG AND 1MG IN DAYTIME
     Route: 048
  2. CRESTOR [Concomitant]
     Route: 048
  3. ACTEMRA [Suspect]
     Indication: WEGENER'S GRANULOMATOSIS
     Route: 041
  4. ZOLPIDEM [Concomitant]
     Route: 048
  5. SULFAMETHOXAZOLE AND TRIMETHOPRIM [Concomitant]
     Route: 048
  6. LOXOPROFEN SODIUM [Concomitant]
     Route: 048
  7. RABEPRAZOLE SODIUM [Concomitant]
     Route: 048
  8. ALPRAZOLAM [Concomitant]
     Route: 048
  9. PREDNISOLONE [Concomitant]
     Dosage: 10MG IN MORNING AND 5MG IN DAYTIME
     Route: 048
  10. REBAMIPIDE [Concomitant]
     Route: 048
  11. ACTONEL [Concomitant]
     Route: 048

REACTIONS (4)
  - OROPHARYNGEAL DISCOMFORT [None]
  - SYNCOPE [None]
  - DYSPNOEA [None]
  - CHALAZION [None]
